FAERS Safety Report 21872046 (Version 1)
Quarter: 2023Q1

REPORT INFORMATION
  Report Type: Spontaneous
  Country: US (occurrence: US)
  Receive Date: 20230117
  Receipt Date: 20230117
  Transmission Date: 20230418
  Serious: No
  Sender: FDA-Public Use
  Company Number: US-SA-SAC20230113000655

PATIENT
  Age: 18 Year

DRUGS (9)
  1. DUPIXENT [Suspect]
     Active Substance: DUPILUMAB
     Indication: Dermatitis atopic
     Dosage: UNK UNK, QOW
     Route: 058
  2. ZYRTEC [Concomitant]
     Active Substance: CETIRIZINE HYDROCHLORIDE
  3. FLOVENT [Concomitant]
     Active Substance: FLUTICASONE PROPIONATE
  4. LEVALBUTEROL [Concomitant]
     Active Substance: LEVALBUTEROL
  5. VITAMINS [Concomitant]
     Active Substance: VITAMINS
  6. FISH OIL [Concomitant]
     Active Substance: FISH OIL
  7. VITAMIN D NOS [Concomitant]
     Active Substance: VITAMIN D NOS
  8. VITAMIN C [Concomitant]
     Active Substance: ASCORBIC ACID
  9. ADVIL [Concomitant]
     Active Substance: IBUPROFEN

REACTIONS (1)
  - Erythema [Not Recovered/Not Resolved]
